FAERS Safety Report 5092135-8 (Version None)
Quarter: 2006Q3

REPORT INFORMATION
  Report Type: 
  Country: None (occurrence: None)
  Receive Date: 20060828
  Receipt Date: 20060828
  Transmission Date: 20061208
  Serious: Yes (Life-Threatening, Hospitalization)
  Sender: FDA-Public Use
  Company Number: None

PATIENT
  Age: 46 Year
  Sex: Male
  Weight: 68.0396 kg

DRUGS (2)
  1. CIPROFLOXACIN [Suspect]
     Indication: EPIDIDYMITIS
     Dosage: SEE IMAGE
     Route: 048
     Dates: start: 20060710, end: 20060723
  2. CIPROFLOXACIN [Suspect]
     Indication: EPIDIDYMITIS
     Dosage: SEE IMAGE
     Route: 048
     Dates: start: 20060805, end: 20060819

REACTIONS (15)
  - AGGRESSION [None]
  - APHASIA [None]
  - ARTHRALGIA [None]
  - DEPRESSION [None]
  - EMOTIONAL DISORDER [None]
  - IMMOBILE [None]
  - INSOMNIA [None]
  - INTENTIONAL OVERDOSE [None]
  - MOOD ALTERED [None]
  - NERVOUSNESS [None]
  - NIGHTMARE [None]
  - RESTLESSNESS [None]
  - SUICIDE ATTEMPT [None]
  - VISION BLURRED [None]
  - VISUAL ACUITY REDUCED [None]
